FAERS Safety Report 7896883-3 (Version None)
Quarter: 2011Q4

REPORT INFORMATION
  Report Type: 
  Country: None (occurrence: None)
  Receive Date: 20111107
  Receipt Date: 20111017
  Transmission Date: 20120403
  Serious: Yes (Hospitalization)
  Sender: FDA-Public Use
  Company Number: US-BAYER-201011096NA

PATIENT
  Age: 48 Year
  Sex: Female
  Weight: 90.703 kg

DRUGS (32)
  1. AZITHROMYCIN [Concomitant]
     Dosage: 250 MG, UNK
     Route: 048
     Dates: start: 20050913
  2. UNSPECIFIED ANTIHYPERTENSIVE PILLS [Concomitant]
     Route: 048
  3. YAZ [Suspect]
     Dosage: UNK UNK, QD
     Route: 048
  4. FLUCONAZOLE [Concomitant]
     Dosage: 150 MG, UNK
     Route: 048
     Dates: start: 20050920
  5. AMLODIPINE BESYLATE AND BENAZEPRIL HCL [Concomitant]
     Dosage: 10/20 MG DAILY
     Route: 048
     Dates: start: 20070618
  6. XANAX [Concomitant]
     Route: 048
  7. HEPARIN [Concomitant]
  8. TRIAMTERENE AND HYDROCHLOROTHIAZIDE [Concomitant]
     Dosage: 2 TABLETS DAILY
     Route: 048
     Dates: start: 20050419
  9. CYCLOBENZAPRINE [Concomitant]
     Dosage: 10 MG, QID
     Dates: start: 20050726
  10. DIAZEPAM [Concomitant]
     Dosage: 5 MG, UNK
     Route: 048
     Dates: start: 20050918
  11. CLINDAMYCIN [Concomitant]
     Dosage: 300 MG, UNK
     Route: 048
     Dates: start: 20060628
  12. COLESTID [Concomitant]
  13. LIPITOR [Concomitant]
     Dosage: 40 MG, UNK
     Route: 048
     Dates: start: 20050517
  14. BENAZEPRIL HYDROCHLORIDE [Concomitant]
     Dosage: 20 MG, UNK
     Route: 048
     Dates: start: 20050823
  15. METHYLPREDNISOLONE [Concomitant]
     Dosage: 4 MG, UNK
     Route: 048
     Dates: start: 20070601
  16. ROCEPHIN [Concomitant]
  17. BUPROPION HYDROCHLORIDE [Concomitant]
     Dosage: 150 MG, UNK
     Route: 048
     Dates: start: 20051101
  18. RHINOCORT [Concomitant]
     Dosage: 32 ?G, UNK
     Route: 049
     Dates: start: 20051111
  19. DIOVAN HCT [Concomitant]
     Dosage: UNK
     Route: 048
     Dates: start: 20070217
  20. LORTAB [Concomitant]
     Dosage: UNK UNK, QID
     Route: 048
  21. YASMIN [Suspect]
     Dosage: UNK UNK, QD
     Route: 048
     Dates: start: 20051108, end: 20061022
  22. YASMIN [Suspect]
     Dosage: UNK
     Dates: start: 20080204, end: 20080615
  23. DROSPIRENONE AND ETHINYL ESTRADIOL [Suspect]
     Dosage: UNK UNK, QD
     Route: 048
     Dates: start: 20080714, end: 20081213
  24. WARFARIN SODIUM [Concomitant]
  25. HYDROCODONE BITARTRATE AND ACETAMINOPHEN [Concomitant]
     Indication: PAIN
     Dosage: UNK UNK, Q4HR
     Dates: start: 20060127
  26. CEFUROXIME [Concomitant]
     Dosage: 500 MG, UNK
     Route: 048
     Dates: start: 20070510
  27. LOTREL [Concomitant]
     Dosage: 10/20 MG CAPSULE DAILY
     Route: 048
     Dates: start: 20050720
  28. FERROUS SULFATE TAB [Concomitant]
     Dosage: 325 MG, BID
     Route: 048
     Dates: start: 20051108
  29. LIPITOR [Concomitant]
     Dosage: 40 MG, QD
     Route: 048
     Dates: start: 20060609
  30. ALPRAZOLAM [Concomitant]
     Dosage: 1 MG, QID
     Route: 048
     Dates: start: 20051123
  31. PROMETHAZINE [Concomitant]
     Dosage: 25 MG, PRN
     Dates: start: 20060605
  32. WELLBUTRIN [Concomitant]
     Route: 048

REACTIONS (19)
  - LEUKOCYTOSIS [None]
  - SPLENIC INFARCTION [None]
  - CHOLECYSTITIS ACUTE [None]
  - SEPTIC SHOCK [None]
  - METABOLIC ENCEPHALOPATHY [None]
  - HEPATIC INFARCTION [None]
  - RENAL FAILURE ACUTE [None]
  - INJURY [None]
  - AORTIC THROMBOSIS [None]
  - GALLBLADDER DISORDER [None]
  - THROMBOCYTOSIS [None]
  - THROMBOSIS [None]
  - LIVER ABSCESS [None]
  - GALLBLADDER ENLARGEMENT [None]
  - HEPATIC ARTERY THROMBOSIS [None]
  - RENAL INFARCT [None]
  - SEPSIS [None]
  - PANCREATITIS ACUTE [None]
  - DEPRESSION [None]
